FAERS Safety Report 4599379-X (Version None)
Quarter: 2005Q1

REPORT INFORMATION
  Report Type: 
  Country: None (occurrence: None)
  Receive Date: 20050302
  Receipt Date: 20040528
  Transmission Date: 20050727
  Serious: Yes (Life-Threatening)
  Sender: FDA-Public Use
  Company Number: 8068

PATIENT
  Age: 53 Year
  Sex: Female

DRUGS (4)
  1. METHOTREXATE [Suspect]
     Indication: RHEUMATOID ARTHRITIS
     Dosage: 70 MG WEEKLY
     Route: 048
     Dates: start: 20031001, end: 20040101
  2. MELOXICAM [Concomitant]
  3. ATENOLOL [Concomitant]
  4. HYDROXYCHLOROQUINE SULFATE [Concomitant]

REACTIONS (5)
  - ALOPECIA [None]
  - BLOOD DISORDER [None]
  - MALAISE [None]
  - MEDICATION ERROR [None]
  - POISONING [None]
